FAERS Safety Report 10153121 (Version 2)
Quarter: 2014Q2

REPORT INFORMATION
  Report Type: Spontaneous
  Country: GB (occurrence: GB)
  Receive Date: 20140505
  Receipt Date: 20140505
  Transmission Date: 20141212
  Serious: Yes (Hospitalization)
  Sender: FDA-Public Use
  Company Number: PHFR2014GB002932

PATIENT
  Age: 30 Year
  Sex: Male

DRUGS (3)
  1. CLOZARIL [Suspect]
     Indication: SCHIZOPHRENIA
     Dosage: 325 MG, QD, ONCE A DAY (OD)
     Route: 048
     Dates: start: 20060306
  2. CLOZARIL [Suspect]
     Dosage: UNK UKN, UNK (OVERDOSE)
     Route: 048
     Dates: start: 20140415
  3. CLOZARIL [Suspect]
     Dosage: UNK (TITRATED UP SLOWLY FOLLOWING OVERDOSE)

REACTIONS (2)
  - Impulsive behaviour [Unknown]
  - Overdose [Unknown]
